FAERS Safety Report 5313000-4 (Version None)
Quarter: 2007Q2

REPORT INFORMATION
  Report Type: 
  Country: None (occurrence: None)
  Receive Date: 20070430
  Receipt Date: 20070419
  Transmission Date: 20071010
  Serious: Yes (Other)
  Sender: FDA-Public Use
  Company Number: DE-PFIZER INC-2007005762

PATIENT
  Sex: Female

DRUGS (1)
  1. XALATAN [Suspect]
     Indication: OPEN ANGLE GLAUCOMA
     Route: 047

REACTIONS (1)
  - RETINITIS [None]
